FAERS Safety Report 8295454-7 (Version None)
Quarter: 2012Q2

REPORT INFORMATION
  Report Type: 
  Country: None (occurrence: None)
  Receive Date: 20120418
  Receipt Date: 20120412
  Transmission Date: 20120825
  Serious: Yes (Hospitalization, Other)
  Sender: FDA-Public Use
  Company Number: US-BAYER-2011-032497

PATIENT
  Age: 45 Year
  Sex: Female
  Weight: 111 kg

DRUGS (18)
  1. YASMIN [Suspect]
     Indication: CONTRACEPTION
     Dosage: UNK
     Route: 048
     Dates: start: 20061001, end: 20070101
  2. METHYLPREDNISOLONE [Concomitant]
     Dosage: 4 MG, UNK
     Route: 048
     Dates: start: 20090105
  3. HYDROCODONE BITARTRATE AND ACETAMINOPHEN [Concomitant]
     Dosage: UNK UNK, HS
     Route: 048
     Dates: start: 20090305
  4. SUMATRIPTAN [Concomitant]
     Route: 048
  5. FISH OIL [Concomitant]
  6. ZOMIG [Concomitant]
  7. RESTASIS [Concomitant]
     Dosage: 0.05 %, UNK
     Route: 047
     Dates: start: 20081012
  8. DURAGESIC-100 [Concomitant]
  9. OMEPRAZOLE [Concomitant]
     Dosage: 40 MG, UNK
     Route: 048
     Dates: start: 20081212
  10. CALCIUM CARBONATE [Concomitant]
  11. TOPAMAX [Concomitant]
     Dosage: 125 MG, BID
     Route: 048
     Dates: start: 20080718
  12. MULTI-VITAMIN [Concomitant]
  13. BUTALBITAL ACETAMINOPHEN AND CAFFEINE [Concomitant]
     Dosage: UNK
     Route: 048
     Dates: start: 20090316
  14. YAZ [Suspect]
     Indication: CONTRACEPTION
     Dosage: UNK
     Route: 048
     Dates: start: 20070101, end: 20090301
  15. ETODOLAC [Concomitant]
     Dosage: 400 MG, BID
     Route: 048
     Dates: start: 20080718
  16. TRAMADOL [Concomitant]
     Dosage: 50 MG, UNK
     Route: 048
     Dates: start: 20090305
  17. PRILOSEC [Concomitant]
  18. NAPROXEN (ALEVE) [Concomitant]

REACTIONS (3)
  - CHOLECYSTITIS CHRONIC [None]
  - DEEP VEIN THROMBOSIS [None]
  - CHOLECYSTECTOMY [None]
